FAERS Safety Report 9664373 (Version 2)
Quarter: 2013Q4

REPORT INFORMATION
  Report Type: Spontaneous
  Country: US (occurrence: US)
  Receive Date: 20131101
  Receipt Date: 20131203
  Transmission Date: 20140711
  Serious: Yes (Hospitalization)
  Sender: FDA-Public Use
  Company Number: US-BAYER-2013-130685

PATIENT
  Age: 45 Year
  Sex: Female
  Weight: 63.49 kg

DRUGS (1)
  1. MIRENA [Suspect]
     Indication: MENORRHAGIA
     Dosage: 20 MCG/24HR, CONT
     Route: 015
     Dates: start: 20100504, end: 20101104

REACTIONS (6)
  - Uterine perforation [None]
  - Abdominal pain [None]
  - Pelvic pain [None]
  - Injury [None]
  - Emotional distress [None]
  - Adverse drug reaction [None]
